FAERS Safety Report 18051621 (Version 4)
Quarter: 2020Q3

REPORT INFORMATION
  Report Type: Report from Study
  Country: CA (occurrence: CA)
  Receive Date: 20200721
  Receipt Date: 20200909
  Transmission Date: 20201103
  Serious: Yes (Hospitalization, Other)
  Sender: FDA-Public Use
  Company Number: CA-JNJFOC-20200628109

PATIENT
  Age: 18 Year
  Sex: Male
  Weight: 55 kg

DRUGS (3)
  1. REMICADE [Suspect]
     Active Substance: INFLIXIMAB
     Indication: CROHN^S DISEASE
     Dosage: ON 06?JUN?2020, PATIENT HAD INFLIXIMAB INFUSION
     Route: 042
     Dates: start: 20200501
  2. REMICADE [Suspect]
     Active Substance: INFLIXIMAB
     Dosage: PATIENT RECEIVED INFUSION ON 28?MAY?2020
     Route: 042
  3. REMICADE [Suspect]
     Active Substance: INFLIXIMAB
     Dosage: 10 MG/KG STAT DOSE THEN EVERY 8 WEEKS
     Route: 042

REACTIONS (10)
  - Crohn^s disease [Unknown]
  - Drug ineffective [Unknown]
  - Infusion related reaction [Recovered/Resolved]
  - Nail discolouration [Unknown]
  - Anal abscess [Recovering/Resolving]
  - Tremor [Unknown]
  - Fistula [Unknown]
  - Abdominal pain [Unknown]
  - Joint swelling [Not Recovered/Not Resolved]
  - Arthralgia [Not Recovered/Not Resolved]

NARRATIVE: CASE EVENT DATE: 20200615
